FAERS Safety Report 5600373-8 (Version None)
Quarter: 2008Q1

REPORT INFORMATION
  Report Type: 
  Country: None (occurrence: None)
  Receive Date: 20080123
  Receipt Date: 20070420
  Transmission Date: 20080703
  Serious: No
  Sender: FDA-Public Use
  Company Number: US-BRISTOL-MYERS SQUIBB COMPANY-13758727

PATIENT

DRUGS (1)
  1. EURAX [Suspect]

REACTIONS (1)
  - DRUG INEFFECTIVE [None]
